FAERS Safety Report 24210569 (Version 2)
Quarter: 2024Q3

REPORT INFORMATION
  Report Type: Spontaneous
  Country: US (occurrence: US)
  Receive Date: 20240814
  Receipt Date: 20240905
  Transmission Date: 20241017
  Serious: No
  Sender: CALLIDITAS THERAPEUTICS
  Company Number: US-Calliditas-2024CAL01465

PATIENT
  Age: 41 Year
  Sex: Male
  Weight: 78.3 kg

DRUGS (1)
  1. TARPEYO [Suspect]
     Active Substance: BUDESONIDE
     Indication: IgA nephropathy
     Route: 048
     Dates: start: 20240723

REACTIONS (11)
  - Fluid retention [Unknown]
  - Asthenia [Unknown]
  - Sleep deficit [Unknown]
  - Sleep disorder [Unknown]
  - Fatigue [Unknown]
  - Weight increased [Recovered/Resolved]
  - Laboratory test abnormal [Unknown]
  - Emotional disorder [Unknown]
  - Poor quality sleep [Unknown]
  - Middle insomnia [Unknown]
  - Chest discomfort [Unknown]

NARRATIVE: CASE EVENT DATE: 20240801
